FAERS Safety Report 12399132 (Version 3)
Quarter: 2016Q3

REPORT INFORMATION
  Report Type: Report from Study
  Country: US (occurrence: US)
  Receive Date: 20160524
  Receipt Date: 20160718
  Transmission Date: 20161109
  Serious: Yes (Hospitalization)
  Sender: FDA-Public Use
  Company Number: US-B.I. PHARMACEUTICALS,INC./RIDGEFIELD-2016-BI-00784BP

PATIENT
  Sex: Female

DRUGS (1)
  1. OFEV [Suspect]
     Active Substance: NINTEDANIB
     Indication: IDIOPATHIC PULMONARY FIBROSIS
     Dosage: 200 MG
     Route: 048
     Dates: start: 20160106

REACTIONS (12)
  - Dyspnoea exertional [Unknown]
  - Pneumonia [Unknown]
  - Diarrhoea [Unknown]
  - Fatigue [Unknown]
  - Dyspepsia [Unknown]
  - Nasal congestion [Unknown]
  - Dyspnoea [Unknown]
  - Cough [Unknown]
  - Contusion [Unknown]
  - Nausea [Unknown]
  - Chest discomfort [Unknown]
  - Abdominal pain upper [Unknown]
